FAERS Safety Report 15846577 (Version 2)
Quarter: 2019Q1

REPORT INFORMATION
  Report Type: Spontaneous
  Country: IT (occurrence: IT)
  Receive Date: 20190121
  Receipt Date: 20190221
  Transmission Date: 20190417
  Serious: Yes (Death, Other)
  Sender: FDA-Public Use
  Company Number: IT-BRISTOL-MYERS SQUIBB COMPANY-BMS-2019-004178

PATIENT
  Age: 80 Year
  Sex: Male
  Weight: 78 kg

DRUGS (1)
  1. APIXABAN [Suspect]
     Active Substance: APIXABAN
     Indication: CEREBROVASCULAR ACCIDENT PROPHYLAXIS
     Dosage: 10 MG, DRUG INTERVAL DOSAGE UNIT NUMBER WAS REPORTED AS 1 DAY.
     Route: 048
     Dates: start: 20160711, end: 20180828

REACTIONS (3)
  - Haematemesis [Fatal]
  - Gastrointestinal neoplasm [Fatal]
  - Melaena [Fatal]

NARRATIVE: CASE EVENT DATE: 20180828
